FAERS Safety Report 5089376-2 (Version None)
Quarter: 2006Q3

REPORT INFORMATION
  Report Type: 
  Country: None (occurrence: None)
  Receive Date: 20060822
  Receipt Date: 20060731
  Transmission Date: 20061208
  Serious: Yes (Hospitalization, Other)
  Sender: FDA-Public Use
  Company Number: US200608000175

PATIENT
  Sex: Female

DRUGS (8)
  1. FORTEO [Suspect]
     Indication: BONE DENSITY DECREASED
  2. FORTEO [Concomitant]
  3. CELEBREX [Concomitant]
  4. PREDNISONE TAB [Concomitant]
  5. MORPHINE [Concomitant]
  6. ALPRAZOLAM [Concomitant]
  7. MIRTAZAPINE [Concomitant]
  8. NEXIUM [Concomitant]

REACTIONS (6)
  - ASTHMA [None]
  - EYE DISORDER [None]
  - NASAL CONGESTION [None]
  - PHARMACEUTICAL PRODUCT COMPLAINT [None]
  - PNEUMONIA BACTERIAL [None]
  - THROMBOSIS [None]
